FAERS Safety Report 6866975-6 (Version None)
Quarter: 2010Q3

REPORT INFORMATION
  Report Type: 
  Country: None (occurrence: None)
  Receive Date: 20100722
  Receipt Date: 20100713
  Transmission Date: 20110219
  Serious: Yes (Other)
  Sender: FDA-Public Use
  Company Number: CA-JNJFOC-20100704489

PATIENT
  Sex: Female

DRUGS (8)
  1. REMICADE [Suspect]
     Indication: CROHN'S DISEASE
     Route: 042
  2. REMICADE [Suspect]
     Route: 042
  3. REMICADE [Suspect]
     Route: 042
  4. TYLENOL [Concomitant]
  5. FLAGYL [Concomitant]
  6. ASPIRIN [Concomitant]
  7. LORAZEPAM [Concomitant]
  8. LOPERAMIDE [Concomitant]

REACTIONS (4)
  - BLOOD IRON DECREASED [None]
  - DIZZINESS [None]
  - HEADACHE [None]
  - TEMPORAL ARTERITIS [None]
